FAERS Safety Report 5008880-6 (Version None)
Quarter: 2006Q2

REPORT INFORMATION
  Report Type: 
  Country: None (occurrence: None)
  Receive Date: 20060404
  Receipt Date: 20051201
  Transmission Date: 20061013
  Serious: No
  Sender: FDA-Public Use
  Company Number: USA0511112569

PATIENT
  Age: 45 Year
  Sex: Male

DRUGS (7)
  1. CYMBALTA [Suspect]
     Indication: NEURALGIA
     Dosage: 20 MG, DAILY (1/D)
     Dates: start: 20051001, end: 20051115
  2. OXYCODONE (OXYCODONE) [Concomitant]
  3. ACETAMINOPHEN AND HYDROCODONE BITARTRATE [Concomitant]
  4. NAPROSYN [Concomitant]
  5. DIAZEPAM [Concomitant]
  6. TYLENOL/USA/(PARACETAMOL) [Concomitant]
  7. NEURONTIN [Concomitant]

REACTIONS (2)
  - PAIN IN EXTREMITY [None]
  - THROAT IRRITATION [None]
